FAERS Safety Report 13985503 (Version 6)
Quarter: 2018Q3

REPORT INFORMATION
  Report Type: Spontaneous
  Country: US (occurrence: US)
  Receive Date: 20170919
  Receipt Date: 20180823
  Transmission Date: 20181010
  Serious: Yes (Hospitalization, Other)
  Sender: FDA-Public Use
  Company Number: US-BIOGEN-2015BI049402

PATIENT
  Sex: Female

DRUGS (5)
  1. ACTHAR [Suspect]
     Active Substance: CORTICOTROPIN
     Indication: PRODUCT USED FOR UNKNOWN INDICATION
     Route: 065
  2. PLEGRIDY [Suspect]
     Active Substance: PEGINTERFERON BETA-1A
     Route: 065
     Dates: start: 20180419
  3. EPIPEN [Concomitant]
     Active Substance: EPINEPHRINE
     Indication: MULTIPLE ALLERGIES
     Route: 065
  4. PLEGRIDY [Suspect]
     Active Substance: PEGINTERFERON BETA-1A
     Indication: MULTIPLE SCLEROSIS
     Route: 058
     Dates: start: 20150320, end: 20151117
  5. PLEGRIDY [Suspect]
     Active Substance: PEGINTERFERON BETA-1A
     Route: 058
     Dates: start: 20150115, end: 20151116

REACTIONS (18)
  - Memory impairment [Not Recovered/Not Resolved]
  - Hypersomnia [Recovered/Resolved]
  - Pyrexia [Recovered/Resolved]
  - Bipolar disorder [Not Recovered/Not Resolved]
  - Aspiration [Recovered/Resolved]
  - Emotional distress [Unknown]
  - Cerebrovascular accident [Recovered/Resolved]
  - Hypersensitivity [Not Recovered/Not Resolved]
  - Oesophageal rupture [Unknown]
  - Psychogenic seizure [Recovered/Resolved]
  - Seizure [Recovered/Resolved]
  - Pneumonia [Recovered/Resolved]
  - Procedural pain [Not Recovered/Not Resolved]
  - Cartilage injury [Unknown]
  - Optic neuritis [Recovered/Resolved]
  - Fatigue [Recovered/Resolved]
  - Gait disturbance [Unknown]
  - Multiple sclerosis relapse [Not Recovered/Not Resolved]

NARRATIVE: CASE EVENT DATE: 2015
